FAERS Safety Report 18406463 (Version 2)
Quarter: 2021Q2

REPORT INFORMATION
  Report Type: Spontaneous
  Country: US (occurrence: US)
  Receive Date: 20201020
  Receipt Date: 20210514
  Transmission Date: 20210717
  Serious: Yes (Other)
  Sender: FDA-Public Use
  Company Number: US-SA-2020SA291207

PATIENT
  Age: 47 Year
  Sex: Male

DRUGS (1)
  1. ZANTAC [Suspect]
     Active Substance: RANITIDINE HYDROCHLORIDE
     Indication: DYSPEPSIA
     Dosage: UNK
     Dates: start: 199207, end: 201407

REACTIONS (3)
  - Colon cancer [Unknown]
  - Colorectal cancer stage II [Unknown]
  - Prostate cancer stage III [Recovered/Resolved]

NARRATIVE: CASE EVENT DATE: 20121101
